FAERS Safety Report 7984124-8 (Version None)
Quarter: 2011Q4

REPORT INFORMATION
  Report Type: 
  Country: None (occurrence: None)
  Receive Date: 20111216
  Receipt Date: 20111213
  Transmission Date: 20120403
  Serious: No
  Sender: FDA-Public Use
  Company Number: US-PFIZER INC-2011304470

PATIENT
  Sex: Female
  Weight: 61.224 kg

DRUGS (6)
  1. VENLAFAXINE HCL [Suspect]
     Indication: DEPRESSION
     Dosage: 75MG DAILY
     Route: 048
     Dates: start: 20111203
  2. VENLAFAXINE HCL [Suspect]
     Dosage: UNK
     Route: 048
  3. TRAZODONE [Concomitant]
     Indication: SLEEP DISORDER
     Dosage: 100MG ONE AND A HALF TABLET DAILY
  4. GABAPENTIN [Suspect]
     Indication: NERVOUS SYSTEM DISORDER
  5. GABAPENTIN [Suspect]
     Indication: FIBROMYALGIA
     Dosage: 300 MG, 4X/DAY
     Dates: start: 20111203
  6. ACETAMINOPHEN [Concomitant]
     Indication: HEADACHE
     Dosage: UNK
     Route: 048

REACTIONS (4)
  - FEELING ABNORMAL [None]
  - SOMNOLENCE [None]
  - DRUG INEFFECTIVE [None]
  - VISION BLURRED [None]
